FAERS Safety Report 6978845-3 (Version None)
Quarter: 2010Q3

REPORT INFORMATION
  Report Type: 
  Country: None (occurrence: None)
  Receive Date: 20100913
  Receipt Date: 20100830
  Transmission Date: 20110219
  Serious: Yes (Other)
  Sender: FDA-Public Use
  Company Number: FR-PFIZER INC-2010110246

PATIENT
  Age: 87 Year
  Sex: Female

DRUGS (5)
  1. ATARAX [Suspect]
     Indication: PREMEDICATION
     Dosage: UNK
     Route: 048
     Dates: start: 20100101
  2. OFLOCET [Suspect]
     Indication: PREMEDICATION
     Dosage: 200MG/40ML
     Route: 042
     Dates: start: 20100101
  3. TROPICAMIDE [Concomitant]
     Dosage: UNK
     Route: 047
     Dates: start: 20100101
  4. NEO-SYNEPHRINE OPHTHALMICS [Concomitant]
     Dosage: UNK
     Route: 047
     Dates: start: 20100101
  5. AMOXICILLIN [Concomitant]
     Dosage: UNK
     Route: 042
     Dates: start: 20100101

REACTIONS (2)
  - ANAPHYLACTIC REACTION [None]
  - SKIN TEST [None]
